FAERS Safety Report 10706660 (Version 1)
Quarter: 2015Q1

REPORT INFORMATION
  Report Type: Spontaneous
  Country: US (occurrence: None)
  Receive Date: 20150109
  Receipt Date: 20150109
  Transmission Date: 20150721
  Serious: No
  Sender: FDA-Public Use
  Company Number: None

PATIENT
  Age: 58 Year
  Sex: Female
  Weight: 54.43 kg

DRUGS (1)
  1. TRAZODONE [Suspect]
     Active Substance: TRAZODONE HYDROCHLORIDE
     Indication: INSOMNIA
     Dosage: ONE PILL  AT BEDTIME  TAKEN BY MOUTH
     Route: 048

REACTIONS (6)
  - Nausea [None]
  - Sinus disorder [None]
  - Parosmia [None]
  - Dyspnoea [None]
  - Insomnia [None]
  - Swelling [None]

NARRATIVE: CASE EVENT DATE: 20141223
